FAERS Safety Report 4376517-5 (Version None)
Quarter: 2004Q2

REPORT INFORMATION
  Report Type: 
  Country: None (occurrence: None)
  Receive Date: 20040614
  Receipt Date: 20040610
  Transmission Date: 20050107
  Serious: Yes (Death, Hospitalization, Other)
  Sender: FDA-Public Use
  Company Number: US-BRISTOL-MYERS SQUIBB COMPANY-12611059

PATIENT
  Age: 69 Year
  Sex: Male
  Weight: 102 kg

DRUGS (12)
  1. TAXOL [Suspect]
     Indication: NON-SMALL CELL LUNG CANCER STAGE IV
     Route: 042
     Dates: start: 20040206, end: 20040206
  2. GEMCITABINE HCL [Suspect]
     Indication: NON-SMALL CELL LUNG CANCER STAGE IV
     Route: 042
     Dates: start: 20040206, end: 20040206
  3. COUMADIN [Concomitant]
  4. PACERONE [Concomitant]
  5. LIPITOR [Concomitant]
  6. METOPROLOL TARTRATE [Concomitant]
  7. PERCOCET [Concomitant]
  8. ATIVAN [Concomitant]
  9. BENADRYL [Concomitant]
  10. DECADRON [Concomitant]
  11. TAGAMET [Concomitant]
  12. PHENERGAN [Concomitant]

REACTIONS (3)
  - COAGULOPATHY [None]
  - NEUTROPENIA [None]
  - SEPTIC SHOCK [None]
